FAERS Safety Report 5492502-4 (Version None)
Quarter: 2007Q4

REPORT INFORMATION
  Report Type: 
  Country: None (occurrence: None)
  Receive Date: 20071022
  Receipt Date: 20071010
  Transmission Date: 20080405
  Serious: Yes (Hospitalization)
  Sender: FDA-Public Use
  Company Number: US-BOEHRINGER INGELHEIM PHARMACEUTICALS, INC.-2007-DE-06006GD

PATIENT
  Age: 84 Year
  Sex: Female

DRUGS (11)
  1. RANITIDINE HCL [Suspect]
     Indication: GASTRITIS
  2. DILANTIN [Suspect]
  3. ATIVAN [Suspect]
     Indication: ANXIETY
  4. BUSPAR [Suspect]
  5. LOTENSIN HCT [Concomitant]
     Dosage: 20 MG BENAZEPRIL HYDROCHLORIDE/12.5 MG HYDROCHLOROTHIAZIDE
  6. MILK OF MAGNESIA [Concomitant]
     Indication: CONSTIPATION
  7. FLONASE [Concomitant]
  8. XALATAN [Concomitant]
  9. BLEPHAMIDE [Concomitant]
  10. VIOXX [Concomitant]
  11. DARVOCET [Concomitant]
     Indication: PAIN
     Dosage: 100 - 400 MG

REACTIONS (16)
  - CONFUSIONAL STATE [None]
  - COORDINATION ABNORMAL [None]
  - DELIRIUM [None]
  - DIZZINESS [None]
  - DRUG INTERACTION [None]
  - DRUG TOXICITY [None]
  - DYSARTHRIA [None]
  - HEADACHE [None]
  - HYPERKALAEMIA [None]
  - HYPOTENSION [None]
  - INSOMNIA [None]
  - LETHARGY [None]
  - NERVOUSNESS [None]
  - PSYCHOTIC DISORDER [None]
  - RENAL FAILURE ACUTE [None]
  - TREMOR [None]
